FAERS Safety Report 10277922 (Version 1)
Quarter: 2014Q3

REPORT INFORMATION
  Report Type: Spontaneous
  Country: US (occurrence: US)
  Receive Date: 20140704
  Receipt Date: 20140704
  Transmission Date: 20150326
  Serious: Yes (Other)
  Sender: FDA-Public Use
  Company Number: US-BRISTOL-MYERS SQUIBB COMPANY-21108113

PATIENT
  Age: 43 Year
  Sex: Male

DRUGS (7)
  1. CYMBALTA [Concomitant]
     Active Substance: DULOXETINE HYDROCHLORIDE
  2. CLONAZEPAM. [Concomitant]
     Active Substance: CLONAZEPAM
  3. RILUZOLE. [Concomitant]
     Active Substance: RILUZOLE
  4. TIZANIDINE [Concomitant]
     Active Substance: TIZANIDINE
  5. BACLOFEN. [Concomitant]
     Active Substance: BACLOFEN
  6. LISINOPRIL. [Concomitant]
     Active Substance: LISINOPRIL
  7. ABILIFY [Suspect]
     Active Substance: ARIPIPRAZOLE
     Indication: BIPOLAR DISORDER

REACTIONS (1)
  - Amyotrophic lateral sclerosis [Unknown]

NARRATIVE: CASE EVENT DATE: 201302
